FAERS Safety Report 7751636-1 (Version None)
Quarter: 2011Q3

REPORT INFORMATION
  Report Type: 
  Country: None (occurrence: None)
  Receive Date: 20110914
  Receipt Date: 20110822
  Transmission Date: 20111222
  Serious: Yes (Hospitalization)
  Sender: FDA-Public Use
  Company Number: FR-AMGEN-FRASP2011043586

PATIENT
  Age: 56 Year
  Sex: Male

DRUGS (5)
  1. VALSARTAN  AND HYDROCHLOROTHIAZIDE [Concomitant]
     Dosage: 1 DF, 1X/DAY
  2. METFORMIN HCL [Concomitant]
     Dosage: 1 DF, 2X/DAY
  3. EZETIMIBE [Concomitant]
     Dosage: 1 DF, 1X/DAY
  4. TRIATEC                            /00885601/ [Concomitant]
     Dosage: 1 DF, 1X/DAY
  5. ENBREL [Suspect]
     Indication: PSORIASIS
     Dosage: UNK
     Dates: start: 20110510

REACTIONS (2)
  - DERMATITIS PSORIASIFORM [None]
  - RASH PUSTULAR [None]
